FAERS Safety Report 25385459 (Version 2)
Quarter: 2025Q2

REPORT INFORMATION
  Report Type: Report from Study
  Country: US (occurrence: US)
  Receive Date: 20250602
  Receipt Date: 20250611
  Transmission Date: 20250717
  Serious: Yes (Other)
  Sender: ABBVIE
  Company Number: US-ABBVIE-6270246

PATIENT
  Age: 77 Year
  Sex: Male

DRUGS (1)
  1. HUMIRA [Suspect]
     Active Substance: ADALIMUMAB
     Indication: Product used for unknown indication
     Route: 058
     Dates: start: 20210525

REACTIONS (3)
  - Rotator cuff syndrome [Recovering/Resolving]
  - Dermatitis contact [Recovered/Resolved]
  - Seborrhoeic dermatitis [Unknown]

NARRATIVE: CASE EVENT DATE: 20211201
